FAERS Safety Report 9228805 (Version 1)
Quarter: 2013Q2

REPORT INFORMATION
  Report Type: Spontaneous
  Country: NO (occurrence: NO)
  Receive Date: 20130412
  Receipt Date: 20130412
  Transmission Date: 20140414
  Serious: Yes (Other)
  Sender: FDA-Public Use
  Company Number: NO-BAYER-2013-044221

PATIENT
  Age: 52 Year
  Sex: Female

DRUGS (1)
  1. QLAIRA [Suspect]

REACTIONS (2)
  - Epistaxis [Recovered/Resolved]
  - Mucosal haemorrhage [Recovered/Resolved]
